FAERS Safety Report 9073108 (Version 1)
Quarter: 2013Q1

REPORT INFORMATION
  Report Type: Report from Study
  Country: US (occurrence: US)
  Receive Date: 20130129
  Receipt Date: 20130129
  Transmission Date: 20140127
  Serious: No
  Sender: FDA-Public Use
  Company Number: US-ABBOTT-12P-163-0920302-00

PATIENT
  Sex: Female
  Weight: 124.4 kg

DRUGS (3)
  1. HUMIRA 40 MG/ 0.8 ML PRE-FILLED SYRINGE [Suspect]
     Indication: RHEUMATOID ARTHRITIS
     Dates: start: 201202
  2. PREDNISONE [Concomitant]
     Indication: RHEUMATOID ARTHRITIS
  3. VITAMIN D [Concomitant]
     Indication: VITAMIN D DECREASED

REACTIONS (1)
  - Injection site pain [Recovered/Resolved]
